FAERS Safety Report 24684043 (Version 1)
Quarter: 2024Q4

REPORT INFORMATION
  Report Type: Spontaneous
  Country: US (occurrence: US)
  Receive Date: 20241202
  Receipt Date: 20241202
  Transmission Date: 20250115
  Serious: Yes (Other)
  Sender: AMGEN
  Company Number: US-AMGEN-USASP2024235651

PATIENT

DRUGS (3)
  1. BEVACIZUMAB [Suspect]
     Active Substance: BEVACIZUMAB
     Indication: Biliary cancer metastatic
     Dosage: 7.5 MILLIGRAM/KILOGRAM, Q3WK OR 7.5 MILLIGRAM/KILOGRAM, Q3WK [DID NOT START UNTIL CYCLE 2]
     Route: 065
  2. TREMELIMUMAB [Suspect]
     Active Substance: TREMELIMUMAB
     Indication: Biliary cancer metastatic
     Dosage: 300 MILLIGRAM
     Route: 065
  3. DURVALUMAB [Suspect]
     Active Substance: DURVALUMAB
     Indication: Biliary cancer metastatic
     Dosage: 1150 MILLIGRAM (FLAT DOSE)
     Route: 065

REACTIONS (7)
  - Myocarditis-myositis-myasthenia gravis overlap syndrome [Unknown]
  - Thyroiditis [Unknown]
  - Colitis [Unknown]
  - Hepatitis [Unknown]
  - Biliary cancer metastatic [Unknown]
  - Off label use [Unknown]
  - Therapy partial responder [Unknown]
